FAERS Safety Report 21822878 (Version 5)
Quarter: 2023Q1

REPORT INFORMATION
  Report Type: Spontaneous
  Country: IT (occurrence: IT)
  Receive Date: 20230105
  Receipt Date: 20230126
  Transmission Date: 20230417
  Serious: Yes (Other)
  Sender: FDA-Public Use
  Company Number: IT-ROCHE-3247284

PATIENT
  Sex: Male

DRUGS (16)
  1. CYTARABINE [Suspect]
     Active Substance: CYTARABINE
     Indication: Mantle cell lymphoma
     Dosage: FIRST LINE OF SYSTEMIC TREATMENT, R-CHOP/R-DHAOX (RITUXIMAB BIOSIMILLAR)
     Route: 042
     Dates: start: 202104, end: 202110
  2. CYCLOPHOSPHAMIDE\DOXORUBICIN\PREDNISONE\VINCRISTINE [Suspect]
     Active Substance: CYCLOPHOSPHAMIDE\DOXORUBICIN\PREDNISONE\VINCRISTINE
     Indication: Mantle cell lymphoma
     Dosage: FIRST LINE OF SYSTEMIC TREATMENT, R-CHOP/R-DHAOX (RITUXIMAB BIOSIMILLAR)
     Route: 042
     Dates: start: 20210401, end: 20211001
  3. VENETOCLAX [Suspect]
     Active Substance: VENETOCLAX
     Indication: Mantle cell lymphoma
     Dosage: THIRD LINE OF SYSTEMIC TREATMENT, IBRUTINIB + VENETOCLAX AND SPLENECTOMY
     Route: 042
     Dates: start: 202203, end: 202204
  4. RITUXIMAB [Suspect]
     Active Substance: RITUXIMAB
     Indication: Mantle cell lymphoma
     Dosage: FIRST LINE OF SYSTEMIC TREATMENT, R-CHOP/R-DHAOX (RITUXIMAB BIOSIMILLAR)
     Route: 042
     Dates: start: 202104, end: 202110
  5. RITUXIMAB [Suspect]
     Active Substance: RITUXIMAB
     Dosage: FOURTH LINE OF SYSTEMIC TREATMENT, POLATUZUMAB VEDOTIN (P-BR)?375 MG/SQM ON DAY 1
     Route: 042
     Dates: start: 20220428, end: 202205
  6. RITUXIMAB [Suspect]
     Active Substance: RITUXIMAB
     Dosage: SIXTH LINE OF SYSTEMIC TREATMENT, POLATUZUMAB VEDOTIN (P-BR)?375 MG/SQM ON DAY 1
     Route: 042
     Dates: start: 20221011, end: 20221103
  7. POLATUZUMAB VEDOTIN [Suspect]
     Active Substance: POLATUZUMAB VEDOTIN
     Indication: Mantle cell lymphoma
     Dosage: FOURTH LINE OF SYSTEMIC TREATMENT, POLATUZUMAB VEDOTIN (P-BR)?1.8 MG/KG ON DAY 2
     Route: 042
     Dates: start: 20220501, end: 202205
  8. POLATUZUMAB VEDOTIN [Suspect]
     Active Substance: POLATUZUMAB VEDOTIN
     Dosage: SIXTH LINE OF SYSTEMIC TREATMENT, POLATUZUMAB VEDOTIN (P-BR)?1.8 MG/KG ON DAY 2
     Route: 042
     Dates: start: 20221001, end: 20221101
  9. BENDAMUSTINE [Suspect]
     Active Substance: BENDAMUSTINE
     Indication: Mantle cell lymphoma
     Dosage: FOURTH LINE OF SYSTEMIC TREATMENT, POLATUZUMAB VEDOTIN (P-BR)?70 MG/SQM ON DAYS 2 AND 3
     Route: 042
     Dates: start: 202205, end: 202205
  10. BENDAMUSTINE [Suspect]
     Active Substance: BENDAMUSTINE
     Dosage: SIXTH LINE OF SYSTEMIC TREATMENT, POLATUZUMAB VEDOTIN (P-BR)?90 MG/SQM ON DAYS 1 AND 2
     Route: 042
     Dates: start: 202210, end: 202211
  11. IBRUTINIB [Suspect]
     Active Substance: IBRUTINIB
     Indication: Mantle cell lymphoma
     Dosage: SECOND LINE OF SYSTEMIC TREATMENT, IBRUTINIB MONOTHERAPY
     Route: 042
     Dates: start: 20211101, end: 20220201
  12. IBRUTINIB [Suspect]
     Active Substance: IBRUTINIB
     Dosage: THIRD LINE OF SYSTEMIC TREATMENT, IBRUTINIB + VENETOCLAX AND SPLENECTOMY
     Route: 065
     Dates: start: 202203, end: 202204
  13. CISPLATIN [Suspect]
     Active Substance: CISPLATIN
     Indication: Mantle cell lymphoma
     Dosage: FIRST LINE OF SYSTEMIC TREATMENT, R-CHOP/R-DHAOX (RITUXIMAB BIOSIMILLAR)
     Route: 042
     Dates: start: 202104, end: 202110
  14. ACYCLOVIR [Concomitant]
     Active Substance: ACYCLOVIR
     Indication: Prophylaxis
  15. LINEZOLID [Concomitant]
     Active Substance: LINEZOLID
     Indication: Product used for unknown indication
  16. BACTRIM [Concomitant]
     Active Substance: SULFAMETHOXAZOLE\TRIMETHOPRIM
     Indication: Prophylaxis

REACTIONS (3)
  - Cytopenia [Unknown]
  - Off label use [Unknown]
  - Lymphadenopathy [Unknown]
